FAERS Safety Report 13642246 (Version 3)
Quarter: 2017Q3

REPORT INFORMATION
  Report Type: Spontaneous
  Country: DE (occurrence: DE)
  Receive Date: 20170612
  Receipt Date: 20170719
  Transmission Date: 20171127
  Serious: Yes (Other)
  Sender: FDA-Public Use
  Company Number: DE-009507513-1508DEU004420

PATIENT
  Age: 36 Year
  Sex: Female

DRUGS (2)
  1. IMPLANON [Suspect]
     Active Substance: ETONOGESTREL
     Indication: CONTRACEPTION
     Dosage: 1 DF, UNK
     Route: 030
     Dates: start: 200909, end: 20160203
  2. FOLIO [Concomitant]
     Active Substance: FOLIC ACID
     Dosage: UNK, QD

REACTIONS (10)
  - Unintended pregnancy [Recovered/Resolved]
  - Adverse event [Not Recovered/Not Resolved]
  - Incorrect route of drug administration [Unknown]
  - Amenorrhoea [Recovered/Resolved]
  - Device deployment issue [Recovered/Resolved]
  - Abortion induced [Unknown]
  - Pregnancy with implant contraceptive [Recovered/Resolved]
  - Complication associated with device [Recovered/Resolved]
  - Incorrect drug administration duration [Unknown]
  - Menstruation irregular [Not Recovered/Not Resolved]

NARRATIVE: CASE EVENT DATE: 2009
